FAERS Safety Report 17327323 (Version 2)
Quarter: 2020Q1

REPORT INFORMATION
  Report Type: Spontaneous
  Country: US (occurrence: US)
  Receive Date: 20200127
  Receipt Date: 20200131
  Transmission Date: 20200409
  Serious: No
  Sender: FDA-Public Use
  Company Number: US-ALKERMES INC.-ALK-2020-000245

PATIENT
  Age: 41 Year
  Sex: Male
  Weight: 90.7 kg

DRUGS (3)
  1. WELLBUTRIN [Concomitant]
     Active Substance: BUPROPION HYDROCHLORIDE
     Indication: MENTAL DISORDER
     Dosage: UNK
  2. LEXAPRO [Concomitant]
     Active Substance: ESCITALOPRAM OXALATE
     Indication: MENTAL DISORDER
     Dosage: UNK
  3. VIVITROL [Suspect]
     Active Substance: NALTREXONE
     Indication: ALCOHOLISM
     Dosage: 380 MG, QMO
     Route: 030
     Dates: start: 20200113

REACTIONS (6)
  - Nausea [Recovered/Resolved]
  - Depressed mood [Unknown]
  - Dysphoria [Unknown]
  - Pain [Unknown]
  - Feeling abnormal [Unknown]
  - Irritability [Unknown]

NARRATIVE: CASE EVENT DATE: 202001
